FAERS Safety Report 8263824-9 (Version None)
Quarter: 2012Q2

REPORT INFORMATION
  Report Type: 
  Country: None (occurrence: None)
  Receive Date: 20120405
  Receipt Date: 20120326
  Transmission Date: 20120825
  Serious: Yes (Hospitalization, Disabling)
  Sender: FDA-Public Use
  Company Number: PL-GILEAD-2011-0036093

PATIENT
  Sex: Female

DRUGS (2)
  1. TENOFOVIR DISOPROXIL FUMARATE [Suspect]
     Indication: HEPATITIS B
     Dosage: 300 MG, QD
     Route: 048
     Dates: start: 20101004
  2. PLACEBO [Suspect]
     Indication: HEPATITIS B
     Dosage: UNK UNK, QD
     Route: 048
     Dates: start: 20090518, end: 20101003

REACTIONS (1)
  - FEMUR FRACTURE [None]
